FAERS Safety Report 6865293-X (Version None)
Quarter: 2010Q3

REPORT INFORMATION
  Report Type: 
  Country: None (occurrence: None)
  Receive Date: 20100721
  Receipt Date: 20080416
  Transmission Date: 20110219
  Serious: No
  Sender: FDA-Public Use
  Company Number: US-PFIZER INC-2008035363

PATIENT
  Sex: Male
  Weight: 104.54 kg

DRUGS (2)
  1. CHANTIX [Suspect]
     Indication: SMOKING CESSATION THERAPY
     Route: 048
     Dates: start: 20080301
  2. BUPRENORPHINE HCL AND NALOXONE HCL [Suspect]
     Route: 048

REACTIONS (8)
  - ASTHENIA [None]
  - BLOOD CHOLESTEROL ABNORMAL [None]
  - DRUG DOSE OMISSION [None]
  - HYPERHIDROSIS [None]
  - NAUSEA [None]
  - RESPIRATORY DISORDER [None]
  - SOMNOLENCE [None]
  - TREMOR [None]
